FAERS Safety Report 18741053 (Version 1)
Quarter: 2021Q1

REPORT INFORMATION
  Report Type: Spontaneous
  Country: GB (occurrence: GB)
  Receive Date: 20210114
  Receipt Date: 20210114
  Transmission Date: 20210419
  Serious: Yes (Hospitalization)
  Sender: FDA-Public Use
  Company Number: GB-MYLANLABS-2021M1001810

PATIENT
  Age: 66 Year
  Sex: Female

DRUGS (1)
  1. ALENDRONATE [Suspect]
     Active Substance: ALENDRONATE SODIUM
     Indication: OSTEOGENESIS IMPERFECTA
     Dosage: RECEIVED FOR 6 YEARS AND SHE WAS ON DRUG HOLIDAY PERIOD FOR 2 YEARS (63?64 YEARS)
     Route: 065

REACTIONS (2)
  - Atypical femur fracture [Unknown]
  - Fall [Unknown]
